FAERS Safety Report 17987990 (Version 1)
Quarter: 2020Q3

REPORT INFORMATION
  Report Type: Spontaneous
  Country: US (occurrence: US)
  Receive Date: 20200707
  Receipt Date: 20200707
  Transmission Date: 20201103
  Serious: Yes (Hospitalization)
  Sender: FDA-Public Use
  Company Number: US-ROCHE-2634798

PATIENT
  Age: 79 Year
  Sex: Female

DRUGS (2)
  1. CAPECITABINE. [Concomitant]
     Active Substance: CAPECITABINE
     Dosage: DAY 1 TO DAY 14 EVERY 21 DAYS
     Route: 065
  2. BEVACIZUMAB. [Suspect]
     Active Substance: BEVACIZUMAB
     Indication: ADENOCARCINOMA OF COLON
     Dosage: 7.5 MG/ KG (DAY 1 EVERY 21 DAYS) AND RECEIVED THE FIRST DOSE OF BEVACIZUMAB 1 WEEK AFTER STARTING CA
     Route: 065

REACTIONS (1)
  - Interstitial lung disease [Recovering/Resolving]
